FAERS Safety Report 21693009 (Version 1)
Quarter: 2022Q4

REPORT INFORMATION
  Report Type: Spontaneous
  Country: None (occurrence: GB)
  Receive Date: 20221207
  Receipt Date: 20221207
  Transmission Date: 20230113
  Serious: Yes (Other)
  Sender: FDA-Public Use
  Company Number: GB-Therakind Limited-2135630

PATIENT
  Age: 72 Year
  Sex: Male
  Weight: 66 kg

DRUGS (3)
  1. METHOTREXATE [Suspect]
     Active Substance: METHOTREXATE
     Indication: Rheumatoid arthritis
     Route: 048
  2. IMRALDI [Suspect]
     Active Substance: ADALIMUMAB
     Route: 058
     Dates: end: 20220801
  3. METHOTREXATE [Suspect]
     Active Substance: METHOTREXATE
     Route: 058

REACTIONS (3)
  - Penile squamous cell carcinoma [Recovered/Resolved]
  - Papilloma viral infection [Recovered/Resolved]
  - Transient ischaemic attack [Recovered/Resolved]

NARRATIVE: CASE EVENT DATE: 20220523
